FAERS Safety Report 23330705 (Version 1)
Quarter: 2023Q4

REPORT INFORMATION
  Report Type: Spontaneous
  Country: ES (occurrence: ES)
  Receive Date: 20231222
  Receipt Date: 20231222
  Transmission Date: 20240109
  Serious: Yes (Life-Threatening, Hospitalization, Other)
  Sender: FDA-Public Use
  Company Number: None

PATIENT
  Age: 37 Year
  Sex: Female

DRUGS (4)
  1. ZEPOSIA [Suspect]
     Active Substance: OZANIMOD HYDROCHLORIDE
     Indication: Relapsing-remitting multiple sclerosis
     Dosage: ZEPOSIA 0.92 MG HARD CAPSULES 28 CAPSULES; DAILY
     Route: 048
     Dates: start: 20230324
  2. NASONEX [Concomitant]
     Active Substance: MOMETASONE FUROATE
     Indication: Product used for unknown indication
     Dosage: NASONEX 50 MICROGRAMS NASAL SPRAY SUSPENSION , 1 SPRAY BOTTLE OF 140 DOSES; 4 EVERY 24 HOURS
     Route: 055
     Dates: start: 20180426
  3. NAPROXENO AUROVITAS [Concomitant]
     Indication: Product used for unknown indication
     Dosage: 500 MG TABLETS EFG 40 TABLETS; EVERY 8 HOURS;
     Route: 048
     Dates: start: 20210319
  4. EBASTINA ARISTO [Concomitant]
     Indication: Product used for unknown indication
     Dosage: 20 MG BUCODISPERSABLE TABLET EFG , 20 TABLETS; DAILY
     Route: 048
     Dates: start: 20120529

REACTIONS (4)
  - Maternal exposure during pregnancy [Recovered/Resolved]
  - Abortion of ectopic pregnancy [Unknown]
  - Ectopic pregnancy [Unknown]
  - Off label use [Unknown]

NARRATIVE: CASE EVENT DATE: 20231209
